FAERS Safety Report 20602779 (Version 13)
Quarter: 2022Q3

REPORT INFORMATION
  Report Type: Spontaneous
  Country: CA (occurrence: CA)
  Receive Date: 20220316
  Receipt Date: 20220826
  Transmission Date: 20221026
  Serious: Yes (Other)
  Sender: FDA-Public Use
  Company Number: CA-PFIZER INC-2021574352

PATIENT
  Age: 60 Year
  Sex: Female
  Weight: 129 kg

DRUGS (41)
  1. RUXIENCE [Suspect]
     Active Substance: RITUXIMAB-PVVR
     Indication: Granulomatosis with polyangiitis
     Dosage: 375 MG/M2, WEEKLY, FOR 4 WEEKS
     Route: 042
     Dates: start: 20210513, end: 20210513
  2. RUXIENCE [Suspect]
     Active Substance: RITUXIMAB-PVVR
     Dosage: 375 MG/M2, WEEKLY, 4 WEEKS
     Route: 042
     Dates: start: 20210513, end: 20210513
  3. RUXIENCE [Suspect]
     Active Substance: RITUXIMAB-PVVR
     Dosage: 375 MG/M2, WEEKLY, FOR  4 WEEKS
     Route: 042
     Dates: start: 20210513, end: 20210603
  4. RUXIENCE [Suspect]
     Active Substance: RITUXIMAB-PVVR
     Dosage: 375 MG/M2, 4 WEEKS
     Route: 042
     Dates: start: 20210520, end: 20210520
  5. RUXIENCE [Suspect]
     Active Substance: RITUXIMAB-PVVR
     Dosage: 375 MG/M2, 4 WEEKS
     Route: 042
     Dates: start: 20210527, end: 20210527
  6. RUXIENCE [Suspect]
     Active Substance: RITUXIMAB-PVVR
     Dosage: 375 MG/M2, 4 WEEKS
     Route: 042
     Dates: start: 20210527, end: 20210527
  7. RUXIENCE [Suspect]
     Active Substance: RITUXIMAB-PVVR
     Dosage: 375 MG/M2, 4 WEEKS
     Route: 042
     Dates: start: 20210603, end: 20210603
  8. RUXIENCE [Suspect]
     Active Substance: RITUXIMAB-PVVR
     Dosage: 375 MG/M2, 4 WEEKS
     Route: 042
     Dates: start: 20210603, end: 20210603
  9. RUXIENCE [Suspect]
     Active Substance: RITUXIMAB-PVVR
     Dosage: 862 MG, WEEKLY, FOR 4 WEEKS
     Route: 042
     Dates: start: 20211006, end: 20211027
  10. RUXIENCE [Suspect]
     Active Substance: RITUXIMAB-PVVR
     Dosage: 862 MG, WEEKLY, FOR 4 WEEKS
     Route: 042
     Dates: start: 20211013, end: 20211013
  11. RUXIENCE [Suspect]
     Active Substance: RITUXIMAB-PVVR
     Dosage: 862 MG, WEEKLY, FOR 4 WEEKS
     Route: 042
     Dates: start: 20211027
  12. RUXIENCE [Suspect]
     Active Substance: RITUXIMAB-PVVR
     Dosage: 862 MG, WEEKLY, FOR 4 WEEKS
     Route: 042
     Dates: start: 20211027
  13. RUXIENCE [Suspect]
     Active Substance: RITUXIMAB-PVVR
     Dosage: 862 MG, WEEKLY, FOR 4 WEEKS
     Route: 042
     Dates: start: 20220228
  14. RUXIENCE [Suspect]
     Active Substance: RITUXIMAB-PVVR
     Dosage: 862 MG, WEEKLY, FOR 4 WEEKS
     Route: 042
     Dates: start: 20220228
  15. RUXIENCE [Suspect]
     Active Substance: RITUXIMAB-PVVR
     Dosage: 862 MG, WEEKLY, FOR 4 WEEKS
     Route: 042
     Dates: start: 20220228, end: 20220321
  16. RUXIENCE [Suspect]
     Active Substance: RITUXIMAB-PVVR
     Dosage: 862 MG, WEEKLY, FOR 4 WEEKS
     Route: 042
     Dates: start: 20220307
  17. RUXIENCE [Suspect]
     Active Substance: RITUXIMAB-PVVR
     Dosage: 862 MG, WEEKLY, FOR 4 WEEKS
     Route: 042
     Dates: start: 20220321
  18. RUXIENCE [Suspect]
     Active Substance: RITUXIMAB-PVVR
     Dosage: 862 MG, WEEKLY, FOR 4 WEEKS
     Route: 042
     Dates: start: 20220321
  19. RUXIENCE [Suspect]
     Active Substance: RITUXIMAB-PVVR
     Dosage: 862 MG, WEEKLY, FOR 4 WEEKS
     Route: 042
     Dates: start: 20220804
  20. RUXIENCE [Suspect]
     Active Substance: RITUXIMAB-PVVR
     Dosage: 862 MG, WEEKLY, FOR 4 WEEKS
     Route: 042
     Dates: start: 20220804
  21. RUXIENCE [Suspect]
     Active Substance: RITUXIMAB-PVVR
     Dosage: 862 MG, WEEKLY, FOR 4 WEEKS
     Route: 042
     Dates: start: 20220811
  22. RUXIENCE [Suspect]
     Active Substance: RITUXIMAB-PVVR
     Dosage: 862 MG, WEEKLY, FOR 4 WEEKS
     Route: 042
     Dates: start: 20220811
  23. RUXIENCE [Suspect]
     Active Substance: RITUXIMAB-PVVR
     Dosage: 862 MG, WEEKLY, FOR 4 WEEKS
     Route: 042
     Dates: start: 20220817
  24. AMLODIPINE [Concomitant]
     Active Substance: AMLODIPINE BESYLATE
     Dosage: 5 MG
  25. ASPIRIN [Concomitant]
     Active Substance: ASPIRIN
     Dosage: 81 MG
  26. AMLODIPINE BESYLATE\PERINDOPRIL ERBUMINE [Concomitant]
     Active Substance: AMLODIPINE BESYLATE\PERINDOPRIL ERBUMINE
     Dosage: 4 MG
  27. ERGOCALCIFEROL [Concomitant]
     Active Substance: ERGOCALCIFEROL
     Dosage: 50000 IU
  28. FOLIC ACID [Concomitant]
     Active Substance: FOLIC ACID
     Dosage: 5 MG
  29. GABAPENTIN [Concomitant]
     Active Substance: GABAPENTIN
     Dosage: 300 MG
  30. JARDIANCE [Concomitant]
     Active Substance: EMPAGLIFLOZIN
     Dosage: 1 DF, DOSAGE NOT AVAILABLE
  31. JARDIANCE [Concomitant]
     Active Substance: EMPAGLIFLOZIN
     Dosage: 25 MG
  32. JARDIANCE [Concomitant]
     Active Substance: EMPAGLIFLOZIN
     Dosage: 1 DF, DOSAGE NOT AVAILABLE
     Route: 065
  33. OZEMPIC [Concomitant]
     Active Substance: SEMAGLUTIDE
     Dosage: 1 MG
  34. PANTOPRAZOLE [Concomitant]
     Active Substance: PANTOPRAZOLE
     Dosage: 40 MG
  35. PREDNISONE [Concomitant]
     Active Substance: PREDNISONE
     Dosage: 50 MG, 1X/DAY
  36. PREDNISONE [Concomitant]
     Active Substance: PREDNISONE
     Dosage: 15 MG, 1X/DAY
  37. PREDNISONE [Concomitant]
     Active Substance: PREDNISONE
     Dosage: 5 MG
  38. RISEDRONATE SODIUM [Concomitant]
     Active Substance: RISEDRONATE SODIUM
     Dosage: 35 MG
  39. ROSUVASTATIN [Concomitant]
     Active Substance: ROSUVASTATIN
     Dosage: 20 UG
  40. SUCRALFATE [Concomitant]
     Active Substance: SUCRALFATE
     Dosage: 1 G
  41. TRAZODONE [Concomitant]
     Active Substance: TRAZODONE HYDROCHLORIDE
     Dosage: 100 MG

REACTIONS (19)
  - Pulmonary congestion [Not Recovered/Not Resolved]
  - Pneumonia bacterial [Recovered/Resolved]
  - Lower respiratory tract infection bacterial [Unknown]
  - Subglottic laryngitis [Recovered/Resolved]
  - Therapeutic response shortened [Unknown]
  - Therapeutic response unexpected [Unknown]
  - Intentional product use issue [Unknown]
  - Myalgia [Not Recovered/Not Resolved]
  - Arthritis [Unknown]
  - Weight increased [Unknown]
  - Cardiac disorder [Not Recovered/Not Resolved]
  - Dyspnoea [Recovered/Resolved]
  - Ear infection [Unknown]
  - Productive cough [Unknown]
  - Malaise [Recovering/Resolving]
  - Cough [Unknown]
  - Weight decreased [Unknown]
  - Off label use [Unknown]
  - Off label use [Unknown]

NARRATIVE: CASE EVENT DATE: 20210101
